FAERS Safety Report 19035538 (Version 1)
Quarter: 2021Q1

REPORT INFORMATION
  Report Type: Spontaneous
  Country: CN (occurrence: CN)
  Receive Date: 20210320
  Receipt Date: 20210320
  Transmission Date: 20210420
  Serious: Yes (Hospitalization, Other)
  Sender: FDA-Public Use
  Company Number: NVSC2021CN061508

PATIENT
  Age: 40 Year
  Sex: Male

DRUGS (1)
  1. OXCARBAZEPINE. [Suspect]
     Active Substance: OXCARBAZEPINE
     Indication: MUSCLE SPASMS
     Dosage: 0.3 (OT), BID
     Route: 065
     Dates: start: 20200912, end: 20200925

REACTIONS (3)
  - Generalised tonic-clonic seizure [Recovering/Resolving]
  - Muscle spasms [Recovered/Resolved]
  - Condition aggravated [Recovered/Resolved]
